FAERS Safety Report 10227135 (Version 2)
Quarter: 2014Q3

REPORT INFORMATION
  Report Type: Spontaneous
  Country: IT (occurrence: None)
  Receive Date: 20140606
  Receipt Date: 20140801
  Transmission Date: 20150326
  Serious: Yes (Other)
  Sender: FDA-Public Use
  Company Number: 7296314

PATIENT
  Age: 85 Year
  Sex: Male

DRUGS (1)
  1. EUTIROX [Suspect]
     Active Substance: LEVOTHYROXINE SODIUM
     Indication: THYROIDECTOMY
     Route: 048
     Dates: start: 20060522, end: 20140422

REACTIONS (4)
  - Atrial fibrillation [None]
  - Palpitations [None]
  - Malaise [None]
  - Hyperthyroidism [None]

NARRATIVE: CASE EVENT DATE: 20140421
